FAERS Safety Report 8444140-9 (Version None)
Quarter: 2012Q2

REPORT INFORMATION
  Report Type: 
  Country: None (occurrence: None)
  Receive Date: 20120323
  Receipt Date: 20111128
  Transmission Date: 20120825
  Serious: Yes (Other)
  Sender: FDA-Public Use
  Company Number: 163-21880-11053383

PATIENT
  Age: 79 Year
  Sex: Male

DRUGS (31)
  1. OMEPRAZOLE [Concomitant]
  2. ALLOPURINOL [Concomitant]
  3. LOVAZA (OMEGA-3 MARINE TRIGLYCERIDES) (UNKNOWN) [Concomitant]
  4. DOXAZOSIN MESYLATE [Concomitant]
  5. METOPROLOL TARTRATE [Concomitant]
  6. OXYCODONE (OXYCODONE) (UNKNOWN) [Concomitant]
  7. SIMVASTATIN [Concomitant]
  8. TEMAZEPAM [Concomitant]
  9. VITAMIN B6 (PYRIDOXINE HYDROCHLORIDE) (UNKNOWN) [Concomitant]
  10. WARFARIN SODIUM [Concomitant]
  11. NEURONTIN [Concomitant]
  12. THIAMINE (THIAMINE) (UNKNOWN) [Concomitant]
  13. ASTELIN (AZELASTINE HYDROCHLORIDE) (SPRAY (NOT INHALATION)) [Concomitant]
  14. DEXAMETHASONE [Concomitant]
  15. PRESERVATION LUTEIN (XANTOFYL) (UNKNOWN) [Concomitant]
  16. PERCOCET [Concomitant]
  17. MULTIVITAMINS WITH MINERAL (MULTIVITAMINS W/MINERALS) (UNKNOWN) [Concomitant]
  18. PYRIDOXINE (PYRIDOXINE) (UNKNOWN) [Concomitant]
  19. COLCHICINE (COLCHICINE) (UNKNOWN) [Concomitant]
  20. OSTEO BI-FLEX (OSTEO BI-FLEX) (UNKNOWN) [Concomitant]
  21. VITAMIN D3 (COLECALCIFEROL) (UNKNOWN) [Concomitant]
  22. GLUCOSAMINE (GLUCOSAMINE) (UNKNOWN) [Concomitant]
  23. PRESER VISION (TABLETS) [Concomitant]
  24. AMITRIPTYLINE HCL [Concomitant]
  25. DIGOXIN [Concomitant]
  26. POLYETH GLYCOL (MACROGOL) (UNKNOWN) [Concomitant]
  27. REVLIMID [Suspect]
     Indication: MULTIPLE MYELOMA
     Dosage: 10 MG, QD X 21 DAYS, PO
     Route: 048
     Dates: start: 20110321
  28. FINASTERIDE (FINASTERIDE) (UNKNOWN) [Concomitant]
  29. GABAPENTIN [Concomitant]
  30. VITAMIN B12 (CYANOCOBALAMIN) (UNKNOWN) [Concomitant]
  31. FOLIC ACID (FOLIC ACID) (UNKNOWN) [Concomitant]

REACTIONS (5)
  - PLATELET COUNT DECREASED [None]
  - RED BLOOD CELL COUNT DECREASED [None]
  - VISION BLURRED [None]
  - WHITE BLOOD CELL COUNT DECREASED [None]
  - CHILLS [None]
